FAERS Safety Report 5270376-4 (Version None)
Quarter: 2007Q1

REPORT INFORMATION
  Report Type: 
  Country: None (occurrence: None)
  Receive Date: 20070320
  Receipt Date: 20070309
  Transmission Date: 20070707
  Serious: Yes (Other)
  Sender: FDA-Public Use
  Company Number: US-PFIZER INC-2007018385

PATIENT
  Sex: Female
  Weight: 74.4 kg

DRUGS (4)
  1. NORVASC [Suspect]
     Indication: HYPERTENSION
  2. LEVOTHROID [Concomitant]
  3. XANAX [Concomitant]
  4. COUMADIN [Concomitant]

REACTIONS (4)
  - FALL [None]
  - LOWER LIMB FRACTURE [None]
  - LUNG DISORDER [None]
  - PULMONARY CONGESTION [None]
